FAERS Safety Report 7686246-8 (Version None)
Quarter: 2011Q3

REPORT INFORMATION
  Report Type: 
  Country: None (occurrence: None)
  Receive Date: 20110816
  Receipt Date: 20110808
  Transmission Date: 20111222
  Serious: Yes (Hospitalization)
  Sender: FDA-Public Use
  Company Number: RO-GENZYME-CERZ-1002197

PATIENT
  Sex: Male

DRUGS (3)
  1. CEREZYME [Suspect]
     Indication: GAUCHER'S DISEASE
     Dosage: 2000 U, Q2W
     Route: 042
     Dates: start: 20100701
  2. CEREZYME [Suspect]
     Dosage: 30 U/KG, UNK
     Route: 042
     Dates: start: 20090901, end: 20100701
  3. CEREZYME [Suspect]
     Dosage: 60 U/KG, Q2W
     Route: 042
     Dates: start: 20070701

REACTIONS (1)
  - APPENDICITIS [None]
